FAERS Safety Report 26088125 (Version 2)
Quarter: 2025Q4

REPORT INFORMATION
  Report Type: Report from Study
  Country: CA (occurrence: CA)
  Receive Date: 20251125
  Receipt Date: 20251215
  Transmission Date: 20260118
  Serious: Yes (Other)
  Sender: INCYTE
  Company Number: CA-EVENT-005043

PATIENT
  Age: 70 Year

DRUGS (1)
  1. PEMIGATINIB [Suspect]
     Active Substance: PEMIGATINIB
     Indication: Cholangiocarcinoma
     Dosage: 13.5 MILLIGRAM, QD (14 DAYS ON AND 7 DAYS OFF)
     Route: 061

REACTIONS (2)
  - Cataract [Unknown]
  - Blood phosphorus increased [Recovered/Resolved]
